FAERS Safety Report 17143287 (Version 2)
Quarter: 2019Q4

REPORT INFORMATION
  Report Type: Spontaneous
  Country: FR (occurrence: FR)
  Receive Date: 20191212
  Receipt Date: 20191218
  Transmission Date: 20200122
  Serious: Yes (Hospitalization)
  Sender: FDA-Public Use
  Company Number: FR-MYLANLABS-2019M1120346

PATIENT
  Age: 65 Year
  Sex: Male
  Weight: 80.5 kg

DRUGS (3)
  1. OXYCODONE MYLAN LP 5 MG, COMPRIM? PELLICUL? ? LIB?RATION PROLONG?E [Interacting]
     Active Substance: OXYCODONE HYDROCHLORIDE
     Indication: ANALGESIC INTERVENTION SUPPORTIVE THERAPY
     Dosage: 1 MATIN, 1 SOIR
     Route: 048
     Dates: start: 20190701, end: 20190710
  2. PIPERACILLIN AND TAZOBACTAM [Suspect]
     Active Substance: PIPERACILLIN SODIUM\TAZOBACTAM SODIUM
     Indication: BACTERIAL INFECTION
     Dosage: 3 DOSAGE FORM, QD
     Route: 042
     Dates: start: 20190708, end: 20190710
  3. FLUCONAZOLE. [Interacting]
     Active Substance: FLUCONAZOLE
     Indication: FUNGAL INFECTION
     Dosage: 2 COMPRIMES LE MATIN
     Route: 048
     Dates: start: 20190709

REACTIONS (2)
  - Drug interaction [Unknown]
  - Hallucination [Recovered/Resolved]

NARRATIVE: CASE EVENT DATE: 20190709
